FAERS Safety Report 9835920 (Version 1)
Quarter: 2014Q1

REPORT INFORMATION
  Report Type: Spontaneous
  Country: US (occurrence: US)
  Receive Date: 20140122
  Receipt Date: 20140122
  Transmission Date: 20141002
  Serious: Yes (Other)
  Sender: FDA-Public Use
  Company Number: US-BIOMARINAP-US-2014-102262

PATIENT
  Sex: Male
  Weight: 13.3 kg

DRUGS (10)
  1. NAGLAZYME [Suspect]
     Indication: MUCOPOLYSACCHARIDOSIS VI
     Dosage: 15 MG, QW
     Route: 041
     Dates: start: 20130507
  2. MIRALAX                            /06344701/ [Concomitant]
     Indication: PRODUCT USED FOR UNKNOWN INDICATION
     Dosage: 17 G, QD
     Route: 048
  3. FLOVENT HFA [Concomitant]
     Indication: PRODUCT USED FOR UNKNOWN INDICATION
     Dosage: UNK, BID
  4. LMX 4 PLUS [Concomitant]
     Indication: PREMEDICATION
     Route: 061
  5. DIPHENHYDRAMINE [Concomitant]
     Indication: PREMEDICATION
     Dosage: 1 UNK, UNK
  6. IBUPROFEN [Concomitant]
     Indication: PREMEDICATION
     Route: 048
  7. ALBUTEROL                          /00139501/ [Concomitant]
     Indication: COUGH
     Dosage: UNK, PRN
  8. CEFDINIR [Concomitant]
     Indication: PRODUCT USED FOR UNKNOWN INDICATION
     Dosage: 180 MG, QD
     Route: 048
  9. EPINEPHRINE [Concomitant]
     Indication: ANAPHYLACTIC REACTION
     Dosage: 0.15 MG, PRN
     Route: 030
  10. FLOXIN OTIC [Concomitant]
     Indication: PRODUCT USED FOR UNKNOWN INDICATION
     Dosage: 10 GTT, BID
     Route: 001

REACTIONS (1)
  - Cervical spinal stenosis [Unknown]
